FAERS Safety Report 8821420 (Version 1)
Quarter: 2012Q4

REPORT INFORMATION
  Report Type: 
  Country: US (occurrence: US)
  Receive Date: 20121002
  Receipt Date: 20121002
  Transmission Date: 20130627
  Serious: No
  Sender: FDA-Public Use
  Company Number: US-009507513-2012SP000912

PATIENT
  Sex: Female

DRUGS (1)
  1. IMPLANON [Suspect]
     Dosage: 1 DF, UNK
     Route: 059

REACTIONS (4)
  - Device breakage [Unknown]
  - Product quality issue [Unknown]
  - No adverse event [Unknown]
  - Device difficult to use [Unknown]
